FAERS Safety Report 18764323 (Version 2)
Quarter: 2021Q1

REPORT INFORMATION
  Report Type: Spontaneous
  Country: CA (occurrence: CA)
  Receive Date: 20210120
  Receipt Date: 20210122
  Transmission Date: 20210419
  Serious: Yes (Hospitalization, Other)
  Sender: FDA-Public Use
  Company Number: CA-TEVA-2021-CA-1872221

PATIENT
  Age: 35 Year
  Sex: Female

DRUGS (5)
  1. AZATHIOPRINE. [Suspect]
     Active Substance: AZATHIOPRINE
     Indication: PRODUCT USED FOR UNKNOWN INDICATION
     Route: 065
  2. FIBRINOGEN [Suspect]
     Active Substance: FIBRINOGEN HUMAN
     Indication: CONGENITAL DYSFIBRINOGENAEMIA
     Dosage: DOSE WAS 12G (170 MG/KG, WEIGHT OF 71 KG);?FIBRINOGEN CONCENTRATE RIASTAP
     Route: 042
  3. ESOMEPRAZOLE. [Suspect]
     Active Substance: ESOMEPRAZOLE MAGNESIUM
     Indication: PRODUCT USED FOR UNKNOWN INDICATION
     Route: 065
  4. MESALAZINE [Suspect]
     Active Substance: MESALAMINE
     Indication: PRODUCT USED FOR UNKNOWN INDICATION
     Route: 065
  5. RANITIDINE. [Suspect]
     Active Substance: RANITIDINE
     Indication: PRODUCT USED FOR UNKNOWN INDICATION
     Route: 065

REACTIONS (4)
  - Maternal exposure during pregnancy [Unknown]
  - Haemorrhage in pregnancy [Recovering/Resolving]
  - Infusion site thrombosis [Unknown]
  - Live birth [Unknown]
